FAERS Safety Report 8180333-6 (Version None)
Quarter: 2012Q1

REPORT INFORMATION
  Report Type: 
  Country: None (occurrence: None)
  Receive Date: 20120227
  Receipt Date: 20120213
  Transmission Date: 20120608
  Serious: Yes (Other)
  Sender: FDA-Public Use
  Company Number: 7113245

PATIENT
  Sex: Female

DRUGS (7)
  1. ACEBROFYLLIN (AMBROXOL ACEFYLLINATE) [Concomitant]
  2. ALPRAZ (ALPRAZOLAM) [Concomitant]
  3. OSCALDIL (ALL OTHER THERAPEUTIC PRODUCTS) [Concomitant]
  4. DAFORIN (FLUOXETINE HYDROCHLORIDE) [Concomitant]
  5. LEVOTHYROXINE SODIUM [Suspect]
     Indication: THYROID DISORDER
     Dosage: (25 MCG)
     Route: 048
     Dates: start: 20090213, end: 20120101
  6. ANDOL (ACETYLSALICYLIC ACID) [Concomitant]
  7. ALPRAZOLAM [Concomitant]

REACTIONS (4)
  - BLOOD PRESSURE FLUCTUATION [None]
  - FATIGUE [None]
  - HOT FLUSH [None]
  - HYPOTENSION [None]
